FAERS Safety Report 15976055 (Version 1)
Quarter: 2019Q1

REPORT INFORMATION
  Report Type: Spontaneous
  Country: US (occurrence: US)
  Receive Date: 20190218
  Receipt Date: 20190218
  Transmission Date: 20190418
  Serious: No
  Sender: FDA-Public Use
  Company Number: US-MYLANLABS-2019M1008944

PATIENT

DRUGS (1)
  1. GALANTAMINE HYDROBROMINE EXTENDED-RELEASE CAPSULES [Suspect]
     Active Substance: GALANTAMINE HYDROBROMIDE
     Indication: MEMORY IMPAIRMENT

REACTIONS (1)
  - Muscle spasms [Recovered/Resolved]
